FAERS Safety Report 11733846 (Version 1)
Quarter: 2015Q4

REPORT INFORMATION
  Report Type: Spontaneous
  Country: US (occurrence: US)
  Receive Date: 20151113
  Receipt Date: 20151113
  Transmission Date: 20160304
  Serious: Yes (Other)
  Sender: FDA-Public Use
  Company Number: US-AMGEN-USASP2015116880

PATIENT
  Sex: Female

DRUGS (1)
  1. ENBREL [Suspect]
     Active Substance: ETANERCEPT
     Indication: PSORIATIC ARTHROPATHY
     Dosage: UNK
     Route: 065

REACTIONS (8)
  - Drug effect incomplete [Unknown]
  - Ankylosing spondylitis [Unknown]
  - Nervousness [Unknown]
  - Glossodynia [Unknown]
  - Nerve injury [Unknown]
  - Psoriatic arthropathy [Recovering/Resolving]
  - Pain [Unknown]
  - Therapeutic response unexpected [Unknown]
